FAERS Safety Report 6619482-X (Version None)
Quarter: 2010Q1

REPORT INFORMATION
  Report Type: 
  Country: None (occurrence: None)
  Receive Date: 20100309
  Receipt Date: 20100224
  Transmission Date: 20100710
  Serious: Yes (Hospitalization)
  Sender: FDA-Public Use
  Company Number: KR-ELI_LILLY_AND_COMPANY-KR201002007154

PATIENT
  Sex: Male
  Weight: 51.45 kg

DRUGS (6)
  1. PEMETREXED [Suspect]
     Indication: NON-SMALL CELL LUNG CANCER
     Dosage: 750 MG, ON DAY1
     Route: 042
     Dates: start: 20071114
  2. FOLIC ACID [Concomitant]
     Indication: PROPHYLAXIS
     Dosage: 1 MG, UNKNOWN
     Route: 048
     Dates: start: 20071107
  3. VITAMIN B-12 [Concomitant]
     Indication: PROPHYLAXIS
     Dosage: 1 MG, UNKNOWN
     Route: 030
     Dates: start: 20071107
  4. DEXAMETHASONE [Concomitant]
     Indication: PROPHYLAXIS
     Dosage: 20 MG, UNKNOWN
     Route: 042
     Dates: start: 20071114
  5. PHENIRAMINE [Concomitant]
     Indication: ALLERGY PROPHYLAXIS
     Dates: start: 20071114, end: 20071221
  6. NASEA [Concomitant]
     Indication: NAUSEA
     Dates: start: 20071114, end: 20071221

REACTIONS (2)
  - DYSPNOEA [None]
  - PNEUMONIA [None]
